FAERS Safety Report 8207325-2 (Version None)
Quarter: 2012Q1

REPORT INFORMATION
  Report Type: 
  Country: None (occurrence: None)
  Receive Date: 20120312
  Receipt Date: 20120228
  Transmission Date: 20120608
  Serious: Yes (Other)
  Sender: FDA-Public Use
  Company Number: 2012NA000027

PATIENT
  Age: 1 Day
  Sex: Female
  Weight: 2.35 kg

DRUGS (6)
  1. AMOXICILLIN W/CLAVULANATE [Concomitant]
  2. RANITIDINE [Concomitant]
  3. POTASSIUM [Concomitant]
  4. METRONIDAZOLE [Concomitant]
  5. DICLOFENAC SODIUM [Suspect]
  6. ACETAMINOPHEN [Concomitant]

REACTIONS (5)
  - OLIGOHYDRAMNIOS [None]
  - RENAL FAILURE NEONATAL [None]
  - METABOLIC ACIDOSIS [None]
  - CAESAREAN SECTION [None]
  - PLACENTAL INSUFFICIENCY [None]
